FAERS Safety Report 9745460 (Version 1)
Quarter: 2013Q4

REPORT INFORMATION
  Report Type: Spontaneous
  Country: US (occurrence: None)
  Receive Date: 20131204
  Receipt Date: 20131204
  Transmission Date: 20140711
  Serious: Yes (Hospitalization, Other)
  Sender: FDA-Public Use
  Company Number: FK201305090

PATIENT
  Age: 67 Year
  Sex: Female

DRUGS (7)
  1. VANCOMYCIN [Suspect]
     Indication: CELLULITIS
     Dosage: INTRAVENOUS (NOT OTHERWISE SPECIFIED), HOSPITAL DAY 3
     Route: 042
  2. CLINDAMYCIN [Suspect]
     Indication: CELLULITIS
  3. FLUID REPLACEMENT [Concomitant]
  4. VASOPRESSORS [Concomitant]
  5. STEROIDS (CORTICOSTEROIRDS) [Concomitant]
  6. CEFEPIME (CEFEPIME) [Concomitant]
  7. LINEZOLID (LINEZOLID) [Concomitant]

REACTIONS (2)
  - Acute generalised exanthematous pustulosis [None]
  - Multi-organ failure [None]
